FAERS Safety Report 13897023 (Version 1)
Quarter: 2017Q3

REPORT INFORMATION
  Report Type: Spontaneous
  Country: US (occurrence: US)
  Receive Date: 20170823
  Receipt Date: 20170823
  Transmission Date: 20171127
  Serious: No
  Sender: FDA-Public Use
  Company Number: US-SWEDISH ORPHAN INTERNATIONAL AB-2017US0306

PATIENT
  Sex: Male

DRUGS (1)
  1. ANAKINRA [Suspect]
     Active Substance: ANAKINRA
     Indication: PUSTULAR PSORIASIS
     Route: 058

REACTIONS (4)
  - Renal disorder [Unknown]
  - Liver disorder [Unknown]
  - White blood cell count increased [Unknown]
  - Off label use [Recovered/Resolved]
